FAERS Safety Report 21321542 (Version 1)
Quarter: 2022Q3

REPORT INFORMATION
  Report Type: Spontaneous
  Country: US (occurrence: US)
  Receive Date: 20220912
  Receipt Date: 20220912
  Transmission Date: 20221027
  Serious: Yes (Hospitalization, Other)
  Sender: FDA-Public Use
  Company Number: US-NOVOPROD-955498

PATIENT
  Age: 79 Year
  Sex: Female

DRUGS (2)
  1. NOVOLOG [Suspect]
     Active Substance: INSULIN ASPART
     Indication: Type 2 diabetes mellitus
     Dosage: UNK
  2. TRESIBA [Suspect]
     Active Substance: INSULIN DEGLUDEC
     Indication: Type 2 diabetes mellitus
     Dosage: 26 IU, QD
     Route: 058

REACTIONS (5)
  - Gout [Not Recovered/Not Resolved]
  - Cellulitis [Not Recovered/Not Resolved]
  - Phlebitis [Not Recovered/Not Resolved]
  - Dehydration [Recovered/Resolved]
  - Hyperglycaemia [Recovered/Resolved]
